FAERS Safety Report 13381162 (Version 1)
Quarter: 2017Q1

REPORT INFORMATION
  Report Type: Spontaneous
  Country: US (occurrence: US)
  Receive Date: 20170329
  Receipt Date: 20170329
  Transmission Date: 20170429
  Serious: No
  Sender: FDA-Public Use
  Company Number: US-PFIZER INC-2017134607

PATIENT
  Age: 73 Year
  Sex: Female
  Weight: 46 kg

DRUGS (7)
  1. GANCICLOVIR. [Concomitant]
     Active Substance: GANCICLOVIR
     Indication: PAIN
  2. CALTRATE WITH VITAMIN D [Concomitant]
     Active Substance: CALCIUM CARBONATE\CHOLECALCIFEROL
     Dosage: 500 OR 600, UNSURE
     Dates: start: 2002
  3. GANCICLOVIR. [Concomitant]
     Active Substance: GANCICLOVIR
     Indication: DEPRESSED MOOD
     Dosage: 500 MG, 3X/DAY
  4. GANCICLOVIR. [Concomitant]
     Active Substance: GANCICLOVIR
     Indication: MUSCLE SPASMS
  5. GANCICLOVIR. [Concomitant]
     Active Substance: GANCICLOVIR
     Indication: NERVOUSNESS
  6. VITAMIN D3 [Concomitant]
     Active Substance: CHOLECALCIFEROL
     Dosage: 2000 IU, UNK
     Dates: start: 2002
  7. RELPAX [Suspect]
     Active Substance: ELETRIPTAN HYDROBROMIDE
     Indication: MIGRAINE
     Dosage: 20 MG, 1-2 BUT MAX 4X/DAY

REACTIONS (1)
  - Drug ineffective [Recovering/Resolving]
